FAERS Safety Report 24527279 (Version 1)
Quarter: 2024Q4

REPORT INFORMATION
  Report Type: Report from Study
  Country: US (occurrence: US)
  Receive Date: 20241021
  Receipt Date: 20241021
  Transmission Date: 20250115
  Serious: No
  Sender: ROCHE
  Company Number: US-ROCHE-3529761

PATIENT
  Age: 41 Year
  Sex: Male

DRUGS (5)
  1. COTELLIC [Suspect]
     Active Substance: COBIMETINIB
     Indication: Rectal cancer
     Dosage: TAKE 3 TABLET(S) BY MOUTH DAILY (MONDAY-FRIDAY), WEEKENDS OFF
     Route: 065
  2. COTELLIC [Suspect]
     Active Substance: COBIMETINIB
     Indication: Metastases to liver
  3. COTELLIC [Suspect]
     Active Substance: COBIMETINIB
     Indication: Cholangiocarcinoma
  4. COTELLIC [Suspect]
     Active Substance: COBIMETINIB
     Indication: Colorectal cancer metastatic
  5. COTELLIC [Suspect]
     Active Substance: COBIMETINIB
     Indication: Neoplasm malignant

REACTIONS (3)
  - Off label use [Unknown]
  - Illness [Unknown]
  - Product prescribing error [Unknown]
